FAERS Safety Report 9060249 (Version 1)
Quarter: 2013Q1

REPORT INFORMATION
  Report Type: Spontaneous
  Country: US (occurrence: US)
  Receive Date: 20130211
  Receipt Date: 20130211
  Transmission Date: 20140127
  Serious: No
  Sender: FDA-Public Use
  Company Number: US-009507513-1302USA001517

PATIENT
  Sex: Female

DRUGS (2)
  1. JANUVIA [Suspect]
     Indication: DIABETES MELLITUS
     Dosage: 50 MG, QD
     Route: 048
  2. JANUVIA [Suspect]
     Dosage: 100 MG, QD
     Route: 048

REACTIONS (3)
  - Glycosylated haemoglobin increased [Unknown]
  - Back pain [Not Recovered/Not Resolved]
  - Constipation [Unknown]
